FAERS Safety Report 5338501-4 (Version None)
Quarter: 2007Q2

REPORT INFORMATION
  Report Type: 
  Country: None (occurrence: None)
  Receive Date: 20070530
  Receipt Date: 20070522
  Transmission Date: 20071010
  Serious: Yes (Death)
  Sender: FDA-Public Use
  Company Number: US-AVENTIS-200713802US

PATIENT
  Age: 57 Year
  Sex: Female

DRUGS (3)
  1. APIDRA [Suspect]
     Dosage: DOSE: UNKNOWN DOSE VIA INSULIN PUMP
  2. HUMALOG                            /00030501/ [Concomitant]
     Dosage: DOSE: UNK
  3. DIAZEPAM [Concomitant]
     Dosage: DOSE: UNK

REACTIONS (1)
  - DEATH [None]
